FAERS Safety Report 15286256 (Version 1)
Quarter: 2018Q3

REPORT INFORMATION
  Report Type: Spontaneous
  Country: DE (occurrence: DE)
  Receive Date: 20180816
  Receipt Date: 20180816
  Transmission Date: 20181010
  Serious: Yes (Other)
  Sender: FDA-Public Use
  Company Number: DE-SEPTODONT-201804767

PATIENT
  Age: 74 Year
  Sex: Male

DRUGS (5)
  1. METOPROLOL. [Concomitant]
     Active Substance: METOPROLOL
     Indication: HYPERTENSION
     Route: 065
  2. AMLODIPIN [Concomitant]
     Active Substance: AMLODIPINE BESYLATE
     Indication: CARDIAC DISORDER
     Route: 065
  3. SEPTANEST [Suspect]
     Active Substance: ARTICAINE HYDROCHLORIDE\EPINEPHRINE BITARTRATE
     Indication: ANAESTHESIA
     Dosage: 1,7 ML INFILTRATION
     Dates: start: 201807
  4. FLECAINID [Concomitant]
     Active Substance: FLECAINIDE
     Indication: CARDIAC DISORDER
     Route: 065
  5. ELIQUIS [Concomitant]
     Active Substance: APIXABAN
     Indication: HYPERTENSION
     Route: 065

REACTIONS (3)
  - Dizziness [Not Recovered/Not Resolved]
  - Palpitations [Not Recovered/Not Resolved]
  - Atrial fibrillation [Not Recovered/Not Resolved]

NARRATIVE: CASE EVENT DATE: 20180706
